FAERS Safety Report 14465853 (Version 2)
Quarter: 2018Q1

REPORT INFORMATION
  Report Type: Spontaneous
  Country: GB (occurrence: GB)
  Receive Date: 20180131
  Receipt Date: 20180206
  Transmission Date: 20180509
  Serious: Yes (Hospitalization)
  Sender: FDA-Public Use
  Company Number: GB-STRIDES ARCOLAB LIMITED-2018SP000636

PATIENT

DRUGS (6)
  1. LATANOPROST. [Concomitant]
     Active Substance: LATANOPROST
     Indication: ANGLE CLOSURE GLAUCOMA
     Dosage: UNKNOWN
     Route: 061
  2. ACETAZOLAMIDE. [Suspect]
     Active Substance: ACETAZOLAMIDE
     Dosage: 125 MG, TID
     Route: 065
  3. APRACLONIDINE [Concomitant]
     Active Substance: APRACLONIDINE HYDROCHLORIDE
     Indication: INTRAOCULAR PRESSURE INCREASED
     Dosage: UNK, BID TO THE LEFT
     Route: 061
  4. DEXAMETHASONE. [Concomitant]
     Active Substance: DEXAMETHASONE
     Indication: ANGLE CLOSURE GLAUCOMA
     Dosage: UNK, EVERY 4 HRS
     Route: 061
  5. ACETAZOLAMIDE. [Suspect]
     Active Substance: ACETAZOLAMIDE
     Dosage: 125 MG, TID
     Route: 065
  6. ACETAZOLAMIDE. [Suspect]
     Active Substance: ACETAZOLAMIDE
     Indication: ANGLE CLOSURE GLAUCOMA
     Dosage: 250 MG, UNKNOWN
     Route: 048

REACTIONS (5)
  - Anuria [Recovered/Resolved]
  - Back pain [Recovered/Resolved]
  - Crystalluria [Recovered/Resolved]
  - Acute kidney injury [Recovered/Resolved]
  - Metabolic acidosis [Recovered/Resolved]
